FAERS Safety Report 21942848 (Version 2)
Quarter: 2023Q1

REPORT INFORMATION
  Report Type: Spontaneous
  Country: US (occurrence: US)
  Receive Date: 20230202
  Receipt Date: 20230314
  Transmission Date: 20230418
  Serious: No
  Sender: FDA-Public Use
  Company Number: US-GBT-019715

PATIENT
  Age: 59 Year
  Sex: Female

DRUGS (1)
  1. OXBRYTA [Suspect]
     Active Substance: VOXELOTOR
     Indication: Sickle cell disease
     Route: 048
     Dates: start: 20200828

REACTIONS (4)
  - Sickle cell anaemia with crisis [Unknown]
  - Sickle cell anaemia with crisis [Recovered/Resolved]
  - Arthralgia [Unknown]
  - Back pain [Unknown]

NARRATIVE: CASE EVENT DATE: 20230119
